FAERS Safety Report 4500254-7 (Version None)
Quarter: 2004Q3

REPORT INFORMATION
  Report Type: 
  Country: None (occurrence: None)
  Receive Date: 20040927
  Receipt Date: 20040719
  Transmission Date: 20050211
  Serious: No
  Sender: FDA-Public Use
  Company Number: USA040772942

PATIENT
  Age: 46 Year
  Sex: Female

DRUGS (2)
  1. STRATTERA [Suspect]
     Indication: ATTENTION DEFICIT/HYPERACTIVITY DISORDER
     Dosage: 40 MG DAY
     Dates: start: 20040716
  2. FLUOXETINE HYDROCHLORIDE [Concomitant]

REACTIONS (5)
  - ANXIETY [None]
  - CRYING [None]
  - DRY MOUTH [None]
  - INSOMNIA [None]
  - NERVOUSNESS [None]
